FAERS Safety Report 25387967 (Version 1)
Quarter: 2025Q2

REPORT INFORMATION
  Report Type: Spontaneous
  Country: US (occurrence: US)
  Receive Date: 20250603
  Receipt Date: 20250603
  Transmission Date: 20250717
  Serious: No
  Sender: SANOFI AVENTIS
  Company Number: US-SA-2025SA156003

PATIENT
  Age: 53 Year
  Sex: Male

DRUGS (3)
  1. DUPIXENT [Suspect]
     Active Substance: DUPILUMAB
     Indication: Nasal polyps
     Dosage: 300 MG, QOW
     Route: 058
     Dates: start: 20210126
  2. BUDESONIDE [Concomitant]
     Active Substance: BUDESONIDE
  3. MONTELUKAST [Concomitant]
     Active Substance: MONTELUKAST

REACTIONS (2)
  - Drug ineffective [Unknown]
  - Surgery [Unknown]
